FAERS Safety Report 9024289 (Version 1)
Quarter: 2013Q1

REPORT INFORMATION
  Report Type: Report from Study
  Country: US (occurrence: US)
  Receive Date: 20130121
  Receipt Date: 20130121
  Transmission Date: 20140127
  Serious: Yes (Death, Hospitalization)
  Sender: FDA-Public Use
  Company Number: PHHO2012US010506

PATIENT
  Age: 75 None
  Sex: Male

DRUGS (13)
  1. AFINITOR [Suspect]
     Indication: THYROID CANCER
     Dosage: 7.5 MG, QD
     Route: 048
     Dates: start: 20120524, end: 20121130
  2. SORAFENIB [Suspect]
     Indication: THYROID CANCER
     Dosage: 600 MG, QD
     Route: 048
     Dates: start: 20120524, end: 20121130
  3. AMITRIPTYLINE [Concomitant]
     Dosage: UNK
     Dates: start: 20120112
  4. AMLODIPINE [Concomitant]
     Dosage: UNK
     Dates: start: 20120112
  5. BRIMONIDINE [Concomitant]
     Dosage: UNK
     Dates: start: 20120223
  6. CALCITRIOL [Concomitant]
     Dosage: UNK
     Dates: start: 20111006
  7. CENTRUM [Concomitant]
     Dosage: UNK
     Dates: start: 19960101
  8. IBUPROFEN [Concomitant]
     Dosage: UNK
     Dates: start: 20100311
  9. LEVOTHYROXINE [Concomitant]
     Dosage: UNK
     Dates: start: 20120112
  10. MEGESTROL [Concomitant]
     Dosage: UNK
     Dates: start: 20120607
  11. METOPROLOL [Concomitant]
     Dosage: UNK
     Dates: start: 19960101
  12. ZOCOR [Concomitant]
     Dosage: UNK
     Dates: start: 19960101
  13. NSAID^S [Concomitant]

REACTIONS (2)
  - Death [Fatal]
  - Dyspnoea [Unknown]
